FAERS Safety Report 18737723 (Version 2)
Quarter: 2022Q3

REPORT INFORMATION
  Report Type: Report from Study
  Country: JP (occurrence: JP)
  Receive Date: 20210113
  Receipt Date: 20220921
  Transmission Date: 20221026
  Serious: No
  Sender: FDA-Public Use
  Company Number: JP-BIOGEN-2021BI00967004

PATIENT
  Age: 8 Year
  Sex: Female
  Weight: 26.6 kg

DRUGS (23)
  1. SPINRAZA [Suspect]
     Active Substance: NUSINERSEN
     Indication: Spinal muscular atrophy
     Route: 050
     Dates: start: 20171018, end: 20171018
  2. SPINRAZA [Suspect]
     Active Substance: NUSINERSEN
     Route: 050
     Dates: start: 20171101, end: 20171101
  3. SPINRAZA [Suspect]
     Active Substance: NUSINERSEN
     Route: 050
     Dates: start: 20171115, end: 20171115
  4. SPINRAZA [Suspect]
     Active Substance: NUSINERSEN
     Route: 050
     Dates: start: 20171220, end: 20171220
  5. SPINRAZA [Suspect]
     Active Substance: NUSINERSEN
     Route: 050
     Dates: start: 20180411, end: 20180411
  6. SPINRAZA [Suspect]
     Active Substance: NUSINERSEN
     Route: 050
     Dates: start: 20180801, end: 20180801
  7. SPINRAZA [Suspect]
     Active Substance: NUSINERSEN
     Route: 050
     Dates: start: 20181205, end: 20181205
  8. SPINRAZA [Suspect]
     Active Substance: NUSINERSEN
     Route: 050
     Dates: start: 20190403, end: 20190403
  9. SPINRAZA [Suspect]
     Active Substance: NUSINERSEN
     Route: 050
     Dates: start: 20190807, end: 20190807
  10. SPINRAZA [Suspect]
     Active Substance: NUSINERSEN
     Route: 050
     Dates: start: 20191211, end: 20191211
  11. SPINRAZA [Suspect]
     Active Substance: NUSINERSEN
     Route: 050
     Dates: start: 20200422
  12. VALPROATE SODIUM [Concomitant]
     Active Substance: VALPROATE SODIUM
     Indication: Spinal muscular atrophy
     Route: 050
  13. THIAMYLAL SODIUM [Concomitant]
     Active Substance: THIAMYLAL SODIUM
     Indication: Anaesthesia procedure
     Dosage: 75MG-200MG
     Route: 050
     Dates: start: 20171018, end: 20171018
  14. THIAMYLAL SODIUM [Concomitant]
     Active Substance: THIAMYLAL SODIUM
     Dosage: 75MG-200MG
     Route: 050
     Dates: start: 20171101, end: 20171101
  15. THIAMYLAL SODIUM [Concomitant]
     Active Substance: THIAMYLAL SODIUM
     Dosage: 75MG-200MG
     Route: 050
     Dates: start: 20171115, end: 20171115
  16. THIAMYLAL SODIUM [Concomitant]
     Active Substance: THIAMYLAL SODIUM
     Dosage: 75MG-200MG
     Route: 050
     Dates: start: 20171220, end: 20171220
  17. THIAMYLAL SODIUM [Concomitant]
     Active Substance: THIAMYLAL SODIUM
     Dosage: 75MG-200MG
     Route: 050
     Dates: start: 20180411, end: 20180411
  18. THIAMYLAL SODIUM [Concomitant]
     Active Substance: THIAMYLAL SODIUM
     Route: 050
     Dates: start: 20180801, end: 20180801
  19. THIAMYLAL SODIUM [Concomitant]
     Active Substance: THIAMYLAL SODIUM
     Route: 050
     Dates: start: 20181205, end: 20181205
  20. THIAMYLAL SODIUM [Concomitant]
     Active Substance: THIAMYLAL SODIUM
     Route: 050
     Dates: start: 20190403, end: 20190403
  21. THIAMYLAL SODIUM [Concomitant]
     Active Substance: THIAMYLAL SODIUM
     Route: 050
     Dates: start: 20190807, end: 20190807
  22. THIAMYLAL SODIUM [Concomitant]
     Active Substance: THIAMYLAL SODIUM
     Route: 050
     Dates: start: 20191211, end: 20191211
  23. THIAMYLAL SODIUM [Concomitant]
     Active Substance: THIAMYLAL SODIUM
     Route: 050
     Dates: start: 20200422

REACTIONS (2)
  - Drug ineffective [Unknown]
  - Cerebrospinal fluid leakage [Recovered/Resolved]

NARRATIVE: CASE EVENT DATE: 20171115
